FAERS Safety Report 15757171 (Version 1)
Quarter: 2018Q4

REPORT INFORMATION
  Report Type: Spontaneous
  Country: US (occurrence: US)
  Receive Date: 20181224
  Receipt Date: 20181224
  Transmission Date: 20190205
  Serious: Yes (Death)
  Sender: FDA-Public Use
  Company Number: None

PATIENT
  Age: 25 Year
  Sex: Male
  Weight: 80.1 kg

DRUGS (1)
  1. LOPERAMIDE HCL [Suspect]
     Active Substance: LOPERAMIDE HYDROCHLORIDE
     Indication: DRUG DEPENDENCE
     Dosage: ?          OTHER FREQUENCY:UNKNOWN;?
     Route: 048

REACTIONS (2)
  - Arrhythmia [None]
  - Condition aggravated [None]

NARRATIVE: CASE EVENT DATE: 20181016
